FAERS Safety Report 6842158-0 (Version None)
Quarter: 2010Q3

REPORT INFORMATION
  Report Type: 
  Country: None (occurrence: None)
  Receive Date: 20100714
  Receipt Date: 20070721
  Transmission Date: 20110219
  Serious: No
  Sender: FDA-Public Use
  Company Number: US-PFIZER INC-2007061147

PATIENT
  Sex: Female
  Weight: 81.8 kg

DRUGS (2)
  1. CHANTIX [Suspect]
     Indication: SMOKING CESSATION THERAPY
     Dates: start: 20070719
  2. MULTI-VITAMINS [Concomitant]

REACTIONS (4)
  - DIARRHOEA [None]
  - ELECTRIC SHOCK [None]
  - HYPOAESTHESIA [None]
  - PARAESTHESIA [None]
